FAERS Safety Report 11472432 (Version 2)
Quarter: 2015Q3

REPORT INFORMATION
  Report Type: Spontaneous
  Country: IT (occurrence: IT)
  Receive Date: 20150908
  Receipt Date: 20150916
  Transmission Date: 20151125
  Serious: Yes (Other)
  Sender: FDA-Public Use
  Company Number: PHHY2015IT107805

PATIENT

DRUGS (3)
  1. PARACETAMOL [Suspect]
     Active Substance: ACETAMINOPHEN
     Indication: PRODUCT USED FOR UNKNOWN INDICATION
     Route: 048
  2. LIORESAL [Suspect]
     Active Substance: BACLOFEN
     Indication: PAIN
     Dosage: 75 UG, QD(FLOW RATE ON THE ISOMED PUMP OF 0.5 ML/DAY)
     Route: 037
  3. MORPHINE [Suspect]
     Active Substance: MORPHINE
     Indication: PAIN
     Dosage: 75 UG, QD(FLOW RATE ON THE ISOMED PUMP OF 0.5 ML/DAY)
     Route: 037

REACTIONS (3)
  - Medical device site mass [Unknown]
  - Implant site pain [Unknown]
  - Medical device site necrosis [Unknown]
